FAERS Safety Report 6116477-X (Version None)
Quarter: 2009Q1

REPORT INFORMATION
  Report Type: 
  Country: None (occurrence: None)
  Receive Date: 20090314
  Receipt Date: 20081219
  Transmission Date: 20090719
  Serious: No
  Sender: FDA-Public Use
  Company Number: US-ABBOTT-08P-163-0494229-00

PATIENT
  Sex: Female
  Weight: 61.29 kg

DRUGS (6)
  1. HUMIRA [Suspect]
     Indication: PSORIASIS
     Dosage: 8 DAYS AFTER 1ST DOSE, THEN EOW
     Route: 058
     Dates: start: 20081201
  2. HUMIRA [Suspect]
     Route: 058
     Dates: start: 20081204, end: 20081204
  3. COZAAR [Concomitant]
     Indication: HYPERTENSION
     Route: 048
  4. SERTRALINE [Concomitant]
     Indication: DEPRESSION
  5. METFORMIN HCL [Concomitant]
     Indication: TYPE 2 DIABETES MELLITUS
  6. ADDERALL 30 [Concomitant]
     Indication: DEPRESSION

REACTIONS (2)
  - ARTHRALGIA [None]
  - JOINT SWELLING [None]
